FAERS Safety Report 6178146-X (Version None)
Quarter: 2009Q2

REPORT INFORMATION
  Report Type: 
  Country: None (occurrence: None)
  Receive Date: 20090504
  Receipt Date: 20090209
  Transmission Date: 20091009
  Serious: No
  Sender: FDA-Public Use
  Company Number: US-ALEXION-A200900108

PATIENT
  Sex: Female

DRUGS (27)
  1. SOLIRIS [Suspect]
     Indication: PAROXYSMAL NOCTURNAL HAEMOGLOBINURIA
     Dosage: 600 MG, UNK
     Route: 042
     Dates: start: 20081217
  2. SOLIRIS [Suspect]
     Dosage: 900 MG, Q2W
     Route: 042
     Dates: start: 20090116
  3. ILLEGIBLE [Concomitant]
     Dosage: 30 MG, BID
  4. POTASSIUM ACETATE [Concomitant]
     Indication: MINERAL SUPPLEMENTATION
     Dosage: 10 MG, QD
  5. ILLEGIBLE [Concomitant]
  6. ATIVAN [Concomitant]
     Indication: ANXIETY
     Dosage: 05 MG, UNK
  7. ALBUTEROL [Concomitant]
     Indication: DYSPNOEA
     Dosage: UNK
  8. FOLATE [Concomitant]
     Dosage: 1 MG, QD
  9. PRIMATENE MIST [Concomitant]
     Indication: DYSPNOEA
     Dosage: UNK
  10. ZOVIRAX                            /00587301/ [Concomitant]
     Indication: HERPES VIRUS INFECTION
     Dosage: UNK
  11. PREDNISONE [Concomitant]
     Dosage: 10 MG, BID
  12. DARVOCET-N 100 [Concomitant]
     Dosage: UNK
  13. SYNTHROID [Concomitant]
     Dosage: 125 UG, QD
  14. CARDIZEM [Concomitant]
     Indication: CARDIAC DISORDER
     Dosage: 120 MG, QD
  15. CARDIZEM [Concomitant]
     Dosage: 240 MG, QD
  16. PROZAC                             /00724401/ [Concomitant]
     Indication: DEPRESSION
     Dosage: 20 MG, QD
  17. PROTONIX                           /01263201/ [Concomitant]
     Indication: DRUG THERAPY
     Dosage: 40 MG, QD
  18. ACYCLOVIR [Concomitant]
     Indication: HERPES VIRUS INFECTION
     Dosage: 200 MG, PRN
  19. ALDACTONE [Concomitant]
     Indication: OEDEMA
     Dosage: 50 MG, PRN
  20. LASIX [Concomitant]
     Indication: OEDEMA
     Dosage: 40 MG, PRN
  21. FLONASE [Concomitant]
     Dosage: 110 MEQ, PRN
  22. SINGULAIR [Concomitant]
     Indication: DYSPNOEA
     Dosage: 10 MG, QD
  23. ASPIRIN [Concomitant]
     Indication: DRUG THERAPY
     Dosage: 81 MG, QD
  24. MICARDIS [Concomitant]
     Indication: CARDIAC DISORDER
     Dosage: 40 MG, QD
  25. FOSAMAX [Concomitant]
     Dosage: UNK, WEEKLY
  26. ARIMIDEX [Concomitant]
     Dosage: 1, QD
  27. DIGOXIN [Concomitant]
     Indication: CARDIAC DISORDER
     Dosage: 125 UG, QD

REACTIONS (4)
  - COUGH [None]
  - HAEMOGLOBIN DECREASED [None]
  - NASOPHARYNGITIS [None]
  - RHINORRHOEA [None]
